FAERS Safety Report 9886344 (Version 1)
Quarter: 2014Q1

REPORT INFORMATION
  Report Type: Spontaneous
  Country: US (occurrence: US)
  Receive Date: 20140210
  Receipt Date: 20140210
  Transmission Date: 20141002
  Serious: Yes (Other)
  Sender: FDA-Public Use
  Company Number: US-TEVA-460803USA

PATIENT
  Sex: Female

DRUGS (1)
  1. MEXILETINE [Suspect]

REACTIONS (5)
  - Choking [Unknown]
  - Foreign body [Unknown]
  - Oropharyngeal pain [Unknown]
  - Dysphagia [Unknown]
  - Dry throat [Unknown]
